FAERS Safety Report 8582901-6 (Version None)
Quarter: 2012Q3

REPORT INFORMATION
  Report Type: 
  Country: None (occurrence: None)
  Receive Date: 20120809
  Receipt Date: 20120731
  Transmission Date: 20120928
  Serious: No
  Sender: FDA-Public Use
  Company Number: US-ASTRAZENECA-2012SE54597

PATIENT
  Age: 57 Year
  Sex: Female

DRUGS (5)
  1. NEXIUM [Suspect]
     Indication: ULCER
     Route: 048
  2. NEXIUM [Suspect]
     Indication: GASTRITIS
     Route: 048
  3. NEXIUM [Suspect]
     Indication: GASTROOESOPHAGEAL REFLUX DISEASE
     Route: 048
  4. NEXIUM [Suspect]
     Indication: SCAR
     Route: 048
  5. OMEPRAZOLE [Suspect]
     Route: 048

REACTIONS (8)
  - ABDOMINAL DISCOMFORT [None]
  - INSOMNIA [None]
  - DRUG INEFFECTIVE [None]
  - CHEST DISCOMFORT [None]
  - OFF LABEL USE [None]
  - DRUG DOSE OMISSION [None]
  - APHAGIA [None]
  - PAIN [None]
